FAERS Safety Report 10205597 (Version 1)
Quarter: 2014Q2

REPORT INFORMATION
  Report Type: Spontaneous
  Country: US (occurrence: US)
  Receive Date: 20140529
  Receipt Date: 20140529
  Transmission Date: 20141212
  Serious: No
  Sender: FDA-Public Use
  Company Number: US-009507513-1405USA009183

PATIENT
  Age: 44 Year
  Sex: Female

DRUGS (5)
  1. ASMANEX TWISTHALER [Suspect]
     Indication: ASTHMA
     Dosage: 220 MICROGRAM, TWICE A DAY
     Route: 055
     Dates: start: 20140505
  2. IPRATROPIUM BROMIDE (WARRICK) [Concomitant]
  3. AMLODIPINE [Concomitant]
  4. HYDROCHLOROTHIAZIDE [Concomitant]
     Route: 048
  5. ORTHO-CEPT [Concomitant]

REACTIONS (2)
  - Abnormal dreams [Not Recovered/Not Resolved]
  - Dysphonia [Not Recovered/Not Resolved]
